FAERS Safety Report 6676903-4 (Version None)
Quarter: 2010Q2

REPORT INFORMATION
  Report Type: 
  Country: None (occurrence: None)
  Receive Date: 20100412
  Receipt Date: 20100331
  Transmission Date: 20101027
  Serious: Yes (Other)
  Sender: FDA-Public Use
  Company Number: BR-PFIZER INC-2010035544

PATIENT
  Age: 51 Year
  Sex: Male
  Weight: 71 kg

DRUGS (2)
  1. CHAMPIX [Suspect]
     Indication: NICOTINE DEPENDENCE
     Dosage: 1 TABLET, 1X/DAY
     Route: 048
     Dates: start: 20100312, end: 20100325
  2. CHAMPIX [Suspect]
     Indication: TOBACCO USER

REACTIONS (2)
  - HALLUCINATION [None]
  - NERVOUSNESS [None]
